FAERS Safety Report 14819940 (Version 2)
Quarter: 2018Q2

REPORT INFORMATION
  Report Type: Spontaneous
  Country: FR (occurrence: FR)
  Receive Date: 20180427
  Receipt Date: 20180503
  Transmission Date: 20180711
  Serious: Yes (Life-Threatening, Hospitalization)
  Sender: FDA-Public Use
  Company Number: FR-PFIZER INC-FR-WYE-H13477810

PATIENT
  Age: 71 Year
  Sex: Male

DRUGS (5)
  1. CORDARONE [Suspect]
     Active Substance: AMIODARONE HYDROCHLORIDE
     Indication: ATRIAL FIBRILLATION
     Dosage: LOADING DOSE OF 1000 MG
     Route: 065
     Dates: start: 20080903
  2. KARDEGIC [Suspect]
     Active Substance: ASPIRIN DL-LYSINE
     Indication: ISCHAEMIC STROKE
     Dosage: UNK
     Route: 065
     Dates: start: 200809
  3. PREVISCAN (FLUINDIONE) [Suspect]
     Active Substance: FLUINDIONE
     Indication: ISCHAEMIC STROKE
     Dosage: 10 MG, DAILY
     Route: 048
     Dates: start: 20080903, end: 20080905
  4. CORDARONE [Suspect]
     Active Substance: AMIODARONE HYDROCHLORIDE
     Dosage: 200 MG, DAILY (LOADING DOSE OF 1000 MG THEN DOSE TO 200 MG)
     Route: 065
     Dates: start: 20080903
  5. HEPARIN [Suspect]
     Active Substance: HEPARIN SODIUM
     Indication: ISCHAEMIC STROKE
     Dosage: 36000 IU, DAILY
     Route: 042
     Dates: start: 20080902, end: 20080906

REACTIONS (1)
  - Muscle haemorrhage [Recovered/Resolved with Sequelae]

NARRATIVE: CASE EVENT DATE: 20080905
